FAERS Safety Report 23588979 (Version 1)
Quarter: 2024Q1

REPORT INFORMATION
  Report Type: Spontaneous
  Country: GB (occurrence: GB)
  Receive Date: 20240303
  Receipt Date: 20240303
  Transmission Date: 20240410
  Serious: Yes (Hospitalization, Disabling, Other)
  Sender: FDA-Public Use
  Company Number: GB-MHRA-MED-202402170021041470-MYNBC

PATIENT
  Age: 24 Year
  Sex: Female
  Weight: 49 kg

DRUGS (9)
  1. DULOXETINE [Suspect]
     Active Substance: DULOXETINE
     Indication: Depression
     Dosage: 60 MILLIGRAM, ONCE A DAY (IN THE MORNING)
     Route: 065
     Dates: start: 20230605, end: 20231220
  2. IVABRADINE [Concomitant]
     Active Substance: IVABRADINE
     Indication: Heart rate
     Dosage: UNK
     Route: 065
     Dates: start: 202307, end: 20240131
  3. ECOTRIN [Concomitant]
     Active Substance: ASPIRIN
     Indication: Coagulopathy
     Dosage: UNK
     Route: 065
     Dates: start: 202307, end: 20240131
  4. PREGABALIN [Concomitant]
     Active Substance: PREGABALIN
     Indication: Pain
     Dosage: UNK
     Route: 065
     Dates: start: 202307, end: 20240101
  5. UNSPECIFIED INGREDIENT [Concomitant]
     Active Substance: UNSPECIFIED INGREDIENT
     Indication: Stress
     Dosage: UNK
     Route: 065
     Dates: start: 202306
  6. MEPROBAMATE [Concomitant]
     Active Substance: MEPROBAMATE
     Indication: Pain
     Dosage: UNK
     Route: 065
     Dates: start: 202307, end: 20240101
  7. TOPIRAMATE [Concomitant]
     Active Substance: TOPIRAMATE
     Indication: Migraine
     Dosage: UNK
     Route: 065
     Dates: start: 202301, end: 202310
  8. CLOBAZAM [Concomitant]
     Active Substance: CLOBAZAM
     Indication: Anxiety
     Dosage: UNK
     Route: 065
     Dates: start: 202202
  9. ZOLPIDEM [Concomitant]
     Active Substance: ZOLPIDEM TARTRATE
     Indication: Insomnia
     Dosage: UNK
     Route: 065
     Dates: start: 20230605

REACTIONS (3)
  - Arteriosclerosis [Unknown]
  - Deep vein thrombosis [Unknown]
  - Pain in extremity [Recovered/Resolved]

NARRATIVE: CASE EVENT DATE: 20230609
